FAERS Safety Report 7681470-2 (Version None)
Quarter: 2011Q3

REPORT INFORMATION
  Report Type: 
  Country: None (occurrence: None)
  Receive Date: 20110812
  Receipt Date: 20110801
  Transmission Date: 20111222
  Serious: Yes (Hospitalization, Other)
  Sender: FDA-Public Use
  Company Number: PHHY2011FR69793

PATIENT
  Sex: Female

DRUGS (11)
  1. ACETAMINOPHEN [Concomitant]
     Dosage: 6 DF, UNK
  2. LASIX [Suspect]
     Dosage: UNK UKN, QD
     Route: 048
     Dates: end: 20110616
  3. ISOSORBIDE DINITRATE [Suspect]
     Dosage: 20 MG, BID
     Route: 048
     Dates: end: 20110616
  4. SERETIDE DISKUS [Concomitant]
     Dosage: UNK UKN, BID
  5. VASTAREL [Suspect]
     Dosage: UNK UKN, BID
     Route: 048
     Dates: end: 20110616
  6. ESCITALOPRAM OXALATE [Suspect]
     Dosage: 0.5 DF, UNK
     Dates: start: 20110615
  7. TRIMEBUTINE [Concomitant]
     Dosage: 100 MG, BID
  8. NITRODERM [Suspect]
     Dosage: UNK UKN, QD
     Dates: end: 20110617
  9. LEXOMIL [Concomitant]
     Dosage: 0.5 DF, UNK
  10. TRAMADOL HCL [Suspect]
     Dosage: 100 MG, BID
     Route: 048
     Dates: end: 20110616
  11. IPRATROPIUM BROMIDE [Concomitant]
     Dosage: UNK UKN, TID

REACTIONS (4)
  - JOINT INJURY [None]
  - GLARE [None]
  - DIZZINESS [None]
  - FALL [None]
